FAERS Safety Report 9339436 (Version 1)
Quarter: 2013Q2

REPORT INFORMATION
  Report Type: Spontaneous
  Country: ES (occurrence: ES)
  Receive Date: 20130610
  Receipt Date: 20130610
  Transmission Date: 20140414
  Serious: Yes (Death)
  Sender: FDA-Public Use
  Company Number: ES-PFIZER INC-2013169573

PATIENT
  Age: 9 Decade
  Sex: Female

DRUGS (7)
  1. VORICONAZOLE [Suspect]
     Indication: BRONCHOPULMONARY ASPERGILLOSIS
     Dosage: 6 MG/KG, 2X/DAY
     Route: 042
  2. VORICONAZOLE [Suspect]
     Dosage: 4 MG/KG, 2X/DAY
     Route: 042
  3. VORICONAZOLE [Suspect]
     Indication: BRONCHOPULMONARY ASPERGILLOSIS
     Dosage: 200 MG, 2X/DAY
     Route: 048
  4. METHYLPREDNISOLONE [Concomitant]
     Indication: CHRONIC OBSTRUCTIVE PULMONARY DISEASE
     Dosage: 60 MG/DAY
  5. METHYLPREDNISOLONE [Concomitant]
     Dosage: 90 MG/DAY
  6. AMOXICILLIN-CLAVULANIC ACID [Concomitant]
     Indication: SPUTUM CULTURE POSITIVE
     Dosage: UNK
  7. PIPERACILLIN/TAZOBACTAM [Concomitant]
     Indication: SPUTUM CULTURE POSITIVE

REACTIONS (3)
  - Inappropriate antidiuretic hormone secretion [Fatal]
  - Hyponatraemia [Fatal]
  - Hepatotoxicity [Fatal]
